FAERS Safety Report 6613708-4 (Version None)
Quarter: 2010Q1

REPORT INFORMATION
  Report Type: 
  Country: None (occurrence: None)
  Receive Date: 20100225
  Receipt Date: 20090313
  Transmission Date: 20100710
  Serious: Yes (Other)
  Sender: FDA-Public Use
  Company Number: 621408

PATIENT
  Age: 18 Year
  Sex: Male
  Weight: 77.1 kg

DRUGS (3)
  1. ACCUTANE [Suspect]
     Indication: ACNE
     Dosage: 40 MG DAILY
     Dates: start: 19821217, end: 19830324
  2. MINOCIN [Concomitant]
  3. TRIAM (TRIAMCINOLONE) [Concomitant]

REACTIONS (8)
  - BLOOD CHOLESTEROL DECREASED [None]
  - BLOOD TRIGLYCERIDES INCREASED [None]
  - COLITIS ULCERATIVE [None]
  - CROHN'S DISEASE [None]
  - HAEMATOCRIT DECREASED [None]
  - INFLAMMATORY BOWEL DISEASE [None]
  - PROCTITIS [None]
  - PYODERMA GANGRENOSUM [None]
